FAERS Safety Report 8482581-4 (Version None)
Quarter: 2012Q3

REPORT INFORMATION
  Report Type: 
  Country: None (occurrence: None)
  Receive Date: 20120702
  Receipt Date: 20120622
  Transmission Date: 20120928
  Serious: Yes (Hospitalization)
  Sender: FDA-Public Use
  Company Number: BR-MERCK-1206BRA00073

PATIENT
  Age: 61 Year
  Sex: Female
  Weight: 65 kg

DRUGS (20)
  1. RIBAVIRIN [Concomitant]
     Route: 065
     Dates: start: 20080101, end: 20080101
  2. COZAAR [Suspect]
     Route: 048
  3. CLONIDINE HYDROCHLORIDE [Concomitant]
     Route: 048
  4. PROPRANOLOL HYDROCHLORIDE [Concomitant]
     Route: 048
  5. INSULIN HUMAN [Concomitant]
     Route: 065
  6. RIBAVIRIN [Concomitant]
     Indication: HEPATITIS C
     Route: 065
     Dates: start: 20050101, end: 20060101
  7. BOCEPREVIR [Concomitant]
     Indication: CHRONIC HEPATITIS
     Route: 065
     Dates: start: 20120308, end: 20120601
  8. ZETIA [Suspect]
     Route: 048
  9. METFORMIN [Concomitant]
     Route: 065
  10. PEGINTERFERON ALFA-2B [Concomitant]
     Indication: HEPATITIS C
     Route: 065
     Dates: start: 20080101, end: 20080101
  11. PEGINTERFERON ALFA-2B [Concomitant]
     Route: 065
     Dates: start: 20120401
  12. HYZAAR [Concomitant]
     Route: 048
  13. PROPRANOLOL HYDROCHLORIDE [Concomitant]
     Route: 048
  14. INSULIN GLARGINE [Concomitant]
     Route: 065
  15. INSULIN GLULISINE [Concomitant]
     Route: 065
  16. INTERFERON (UNSPECIFIED) [Concomitant]
     Indication: HEPATITIS C
     Route: 065
     Dates: start: 20050101, end: 20060101
  17. RIBAVIRIN [Concomitant]
     Route: 065
     Dates: start: 20120202
  18. PEGINTERFERON ALFA-2A [Concomitant]
     Indication: HEPATITIS C
     Route: 065
     Dates: start: 20120209, end: 20120401
  19. PANTOPRAZOLE [Concomitant]
     Route: 048
  20. SAXAGLIPTIN [Concomitant]
     Route: 065

REACTIONS (13)
  - BLOOD BILIRUBIN INCREASED [None]
  - ALPHA 1 FOETOPROTEIN INCREASED [None]
  - BLOOD BILIRUBIN UNCONJUGATED INCREASED [None]
  - ALANINE AMINOTRANSFERASE INCREASED [None]
  - ASPARTATE AMINOTRANSFERASE INCREASED [None]
  - PLATELET COUNT DECREASED [None]
  - BLOOD UREA INCREASED [None]
  - FUNGAEMIA [None]
  - HAEMOGLOBIN DECREASED [None]
  - HAEMATOCRIT DECREASED [None]
  - BILIRUBIN CONJUGATED INCREASED [None]
  - FEBRILE NEUTROPENIA [None]
  - ASTHENIA [None]
